FAERS Safety Report 18521618 (Version 1)
Quarter: 2020Q4

REPORT INFORMATION
  Report Type: Spontaneous
  Country: US (occurrence: US)
  Receive Date: 20201118
  Receipt Date: 20201118
  Transmission Date: 20210114
  Serious: Yes (Hospitalization)
  Sender: FDA-Public Use
  Company Number: None

PATIENT
  Age: 52 Year
  Sex: Male

DRUGS (1)
  1. OPSUMIT [Suspect]
     Active Substance: MACITENTAN
     Indication: PULMONARY ARTERIAL HYPERTENSION
     Route: 048
     Dates: start: 20151104

REACTIONS (6)
  - Hallucination [None]
  - Hyponatraemia [None]
  - Confusional state [None]
  - Refusal of treatment by patient [None]
  - Acute kidney injury [None]
  - Hypovolaemia [None]

NARRATIVE: CASE EVENT DATE: 20201108
